FAERS Safety Report 7924562-2 (Version None)
Quarter: 2011Q4

REPORT INFORMATION
  Report Type: 
  Country: None (occurrence: None)
  Receive Date: 20111117
  Receipt Date: 20110323
  Transmission Date: 20120403
  Serious: No
  Sender: FDA-Public Use
  Company Number: US-AMGEN-USASP2011004285

PATIENT
  Age: 47 Year
  Sex: Female

DRUGS (2)
  1. ENBREL [Suspect]
     Dosage: 50 MG, QWK
     Dates: start: 20110111
  2. ENBREL [Suspect]
     Indication: ANKYLOSING SPONDYLITIS
     Dosage: 50 MG, QWK
     Dates: start: 20110111

REACTIONS (21)
  - MIDDLE INSOMNIA [None]
  - PYREXIA [None]
  - PAIN IN EXTREMITY [None]
  - INJECTION SITE HAEMATOMA [None]
  - MOVEMENT DISORDER [None]
  - BACK PAIN [None]
  - DRUG INEFFECTIVE [None]
  - ASTHENIA [None]
  - MUSCLE SPASMS [None]
  - HYPERHIDROSIS [None]
  - RASH PRURITIC [None]
  - FATIGUE [None]
  - HEADACHE [None]
  - ARTHRALGIA [None]
  - INJECTION SITE ERYTHEMA [None]
  - RASH ERYTHEMATOUS [None]
  - PAIN [None]
  - URTICARIA [None]
  - MUSCULOSKELETAL DISCOMFORT [None]
  - MUSCULOSKELETAL STIFFNESS [None]
  - DIZZINESS [None]
